FAERS Safety Report 8076750-5 (Version None)
Quarter: 2012Q1

REPORT INFORMATION
  Report Type: 
  Country: None (occurrence: None)
  Receive Date: 20120127
  Receipt Date: 20120119
  Transmission Date: 20120608
  Serious: Yes (Hospitalization)
  Sender: FDA-Public Use
  Company Number: US-JNJFOC-20110911274

PATIENT
  Sex: Female

DRUGS (5)
  1. ASPIRIN [Concomitant]
     Dates: start: 20101222
  2. VERAPAMIL [Concomitant]
  3. NEXIUM [Concomitant]
  4. VITAMIN D [Concomitant]
  5. STELARA [Suspect]
     Indication: PSORIASIS
     Route: 058
     Dates: start: 20100520, end: 20101212

REACTIONS (5)
  - UPPER RESPIRATORY TRACT INFECTION [None]
  - DIVERTICULITIS [None]
  - URINARY TRACT INFECTION [None]
  - PNEUMONIA [None]
  - INFECTIOUS PERITONITIS [None]
